FAERS Safety Report 6478036-9 (Version None)
Quarter: 2009Q4

REPORT INFORMATION
  Report Type: 
  Country: None (occurrence: None)
  Receive Date: 20091203
  Receipt Date: 20091203
  Transmission Date: 20100525
  Serious: Yes (Hospitalization)
  Sender: FDA-Public Use
  Company Number: None

PATIENT
  Sex: Male
  Weight: 30.3 kg

DRUGS (3)
  1. METHOTREXATE [Suspect]
     Dosage: 841 MG
  2. ONCASPAR [Suspect]
     Dosage: 5175 IU
  3. VINCRISTINE SULFATE [Suspect]
     Dosage: 6.5 MG

REACTIONS (1)
  - CHOLECYSTITIS [None]
